FAERS Safety Report 14150045 (Version 1)
Quarter: 2017Q4

REPORT INFORMATION
  Report Type: Spontaneous
  Country: US (occurrence: US)
  Receive Date: 20171101
  Receipt Date: 20171101
  Transmission Date: 20180321
  Serious: Yes (Hospitalization, Other)
  Sender: FDA-Public Use
  Company Number: US-GLAXOSMITHKLINE-US2017166712

PATIENT
  Sex: Female

DRUGS (20)
  1. MONTELUKAST [Concomitant]
     Active Substance: MONTELUKAST SODIUM
  2. GLIMEPIRIDE. [Concomitant]
     Active Substance: GLIMEPIRIDE
  3. MUCINEX [Concomitant]
     Active Substance: GUAIFENESIN
  4. PREDNISONE. [Concomitant]
     Active Substance: PREDNISONE
  5. AMOXICILLIN + CLAVULANATE [Concomitant]
     Active Substance: AMOXICILLIN\CLAVULANATE POTASSIUM
  6. AMLODIPINE [Concomitant]
     Active Substance: AMLODIPINE BESYLATE
  7. ATORVASTATIN [Concomitant]
     Active Substance: ATORVASTATIN
  8. NOVOLIN [Concomitant]
     Active Substance: INSULIN HUMAN
  9. INCRUSE ELLIPTA [Suspect]
     Active Substance: UMECLIDINIUM BROMIDE
     Indication: CHRONIC OBSTRUCTIVE PULMONARY DISEASE
     Dosage: 1 PUFF(S), QD
     Route: 055
  10. XANAX [Concomitant]
     Active Substance: ALPRAZOLAM
  11. ASPIRIN. [Concomitant]
     Active Substance: ASPIRIN
  12. PERCOCET [Concomitant]
     Active Substance: ACETAMINOPHEN\OXYCODONE HYDROCHLORIDE
  13. IPRATROPIUM BROMIDE + SALBUTAMOL NEBULIZER SOLUTION [Concomitant]
     Active Substance: ALBUTEROL SULFATE\IPRATROPIUM BROMIDE
  14. ALBUTEROL NEBULIZER [Concomitant]
     Active Substance: ALBUTEROL
  15. NOVOLOG [Concomitant]
     Active Substance: INSULIN ASPART
  16. METFORMIN [Concomitant]
     Active Substance: METFORMIN HYDROCHLORIDE
  17. BREO ELLIPTA [Suspect]
     Active Substance: FLUTICASONE FUROATE\VILANTEROL TRIFENATATE
     Indication: CHRONIC OBSTRUCTIVE PULMONARY DISEASE
     Dosage: 1 PUFF(S), QD
     Route: 055
  18. ZOLPIDEM [Concomitant]
     Active Substance: ZOLPIDEM\ZOLPIDEM TARTRATE
  19. METOPROLOL TARTRATE. [Concomitant]
     Active Substance: METOPROLOL TARTRATE
  20. METHOCARBAMOL. [Concomitant]
     Active Substance: METHOCARBAMOL

REACTIONS (11)
  - Pleurisy [Unknown]
  - Spinal operation [Recovering/Resolving]
  - Increased viscosity of upper respiratory secretion [Unknown]
  - Dyspnoea [Unknown]
  - Productive cough [Unknown]
  - Panic attack [Unknown]
  - Nasopharyngitis [Not Recovered/Not Resolved]
  - Chronic obstructive pulmonary disease [Unknown]
  - Pneumonia [Unknown]
  - Sputum discoloured [Unknown]
  - Bronchitis [Unknown]
